FAERS Safety Report 5571580-8 (Version None)
Quarter: 2007Q4

REPORT INFORMATION
  Report Type: 
  Country: None (occurrence: None)
  Receive Date: 20071221
  Receipt Date: 20071217
  Transmission Date: 20080405
  Serious: Yes (Other)
  Sender: FDA-Public Use
  Company Number: DE-ELI_LILLY_AND_COMPANY-DE200712003207

PATIENT
  Sex: Female
  Weight: 80 kg

DRUGS (3)
  1. CYMBALTA [Suspect]
     Dosage: 2040 MG, UNKNOWN
     Route: 048
  2. CARBAMAZEPINE [Concomitant]
     Dosage: 4000 MG, UNKNOWN
     Route: 048
  3. ALCOHOL [Concomitant]
     Dosage: UNK, UNKNOWN
     Route: 065

REACTIONS (5)
  - ACIDOSIS [None]
  - CYANOSIS [None]
  - INTENTIONAL OVERDOSE [None]
  - SOMNOLENCE [None]
  - SUICIDE ATTEMPT [None]
